FAERS Safety Report 12957868 (Version 1)
Quarter: 2016Q4

REPORT INFORMATION
  Report Type: Spontaneous
  Country: US (occurrence: US)
  Receive Date: 20161118
  Receipt Date: 20161118
  Transmission Date: 20170207
  Serious: Yes (Other)
  Sender: FDA-Public Use
  Company Number: US-BAUSCH-BL-2016-027497

PATIENT
  Age: 39 Year
  Sex: Female

DRUGS (4)
  1. NU-DERM CLEAR [Suspect]
     Active Substance: HYDROQUINONE
     Indication: PRODUCT USED FOR UNKNOWN INDICATION
     Dosage: APPLIED EXTERNALLY TO FACE.
     Route: 061
     Dates: end: 201604
  2. NU-DERM SUN SHIELD SPF 50 SUNSCREEN [Suspect]
     Active Substance: OCTINOXATE\ZINC OXIDE
     Indication: PRODUCT USED FOR UNKNOWN INDICATION
     Route: 061
     Dates: end: 201604
  3. NU-DERM BLENDER [Suspect]
     Active Substance: HYDROQUINONE
     Indication: PRODUCT USED FOR UNKNOWN INDICATION
     Dosage: ONCE NIGHTLY APPLIED TO FACE
     Route: 061
     Dates: end: 201604
  4. TRETINOIN. [Suspect]
     Active Substance: TRETINOIN
     Indication: PRODUCT USED FOR UNKNOWN INDICATION
     Route: 061

REACTIONS (1)
  - Ochronosis [Not Recovered/Not Resolved]

NARRATIVE: CASE EVENT DATE: 201510
